FAERS Safety Report 8784616 (Version 1)
Quarter: 2012Q4

REPORT INFORMATION
  Report Type: Spontaneous
  Country: US (occurrence: None)
  Receive Date: 20120831
  Receipt Date: 20120831
  Transmission Date: 20130627
  Serious: Yes (Hospitalization, Other)
  Sender: FDA-Public Use
  Company Number: HA12-251-AE

PATIENT
  Age: 45 Year
  Sex: Female
  Weight: 73.03 kg

DRUGS (1)
  1. SMZ / TMP [Suspect]
     Indication: CELLULITIS OF FACE
     Dosage: 2 tablets, bid, oral
     Route: 048
     Dates: start: 20110919, end: 201204

REACTIONS (20)
  - Nausea [None]
  - Vomiting [None]
  - Mucous stools [None]
  - Haematochezia [None]
  - Cough [None]
  - Muscular weakness [None]
  - Headache [None]
  - Musculoskeletal stiffness [None]
  - Yellow skin [None]
  - Chromaturia [None]
  - Fatigue [None]
  - Abdominal pain [None]
  - Pruritus [None]
  - Swelling face [None]
  - Swollen tongue [None]
  - Lip swelling [None]
  - Decreased appetite [None]
  - Arthropathy [None]
  - Condition aggravated [None]
  - Serotonin syndrome [None]
